FAERS Safety Report 6564258-5 (Version None)
Quarter: 2010Q1

REPORT INFORMATION
  Report Type: 
  Country: None (occurrence: None)
  Receive Date: 20100201
  Receipt Date: 20100119
  Transmission Date: 20100710
  Serious: Yes (Hospitalization)
  Sender: FDA-Public Use
  Company Number: DE-RANBAXY-2009RR-22773

PATIENT
  Age: 72 Year
  Sex: Female
  Weight: 77 kg

DRUGS (7)
  1. CLINDAMYCIN HYDROCHLORIDE [Suspect]
     Indication: ERYSIPELAS
     Dosage: 600 MG, BID
     Route: 048
     Dates: start: 20080703, end: 20080721
  2. PANTOPRAZOLE [Suspect]
     Indication: PROPHYLAXIS AGAINST GASTROINTESTINAL ULCER
     Dosage: 40 MG, QD
     Route: 048
     Dates: start: 20070101
  3. BISOPROLOL FUMARATE [Concomitant]
     Indication: RENAL HYPERTENSION
     Dosage: 5 MG, BID
     Route: 048
     Dates: start: 20000101
  4. COAPROVEL [Concomitant]
     Indication: RENAL HYPERTENSION
     Dosage: 1 DF, QD
     Route: 048
     Dates: start: 20050101
  5. FALITHROM [Concomitant]
     Indication: ATRIAL FIBRILLATION
     Dosage: 1 UNK, QD
     Route: 048
     Dates: start: 20050101
  6. SIMVASTATIN [Concomitant]
     Indication: HYPERLIPIDAEMIA
     Dosage: 20 MG, QD
     Route: 048
     Dates: end: 20080808
  7. TORSEMIDE [Concomitant]
     Indication: RENAL HYPERTENSION
     Dosage: 10 MG, QD
     Route: 048
     Dates: start: 20050101

REACTIONS (2)
  - CLOSTRIDIUM DIFFICILE COLITIS [None]
  - DRUG INTERACTION [None]
